FAERS Safety Report 20745340 (Version 1)
Quarter: 2022Q2

REPORT INFORMATION
  Report Type: Spontaneous
  Country: CN (occurrence: CN)
  Receive Date: 20220425
  Receipt Date: 20220425
  Transmission Date: 20220721
  Serious: Yes (Other)
  Sender: FDA-Public Use
  Company Number: CN-009507513-2204CHN006841

PATIENT
  Age: 65 Year
  Sex: Male

DRUGS (8)
  1. PEMBROLIZUMAB [Suspect]
     Active Substance: PEMBROLIZUMAB
     Indication: Undifferentiated sarcoma
  2. DOXORUBICIN [Suspect]
     Active Substance: DOXORUBICIN
     Indication: Undifferentiated sarcoma
     Dosage: 2 CYCLICAL
  3. CISPLATIN [Suspect]
     Active Substance: CISPLATIN
     Indication: Undifferentiated sarcoma
     Dosage: 2 CYCLICAL
  4. IFOSFAMIDE [Suspect]
     Active Substance: IFOSFAMIDE
     Indication: Undifferentiated sarcoma
     Dosage: 1 CYCLICAL
  5. GEMCITABINE [Suspect]
     Active Substance: GEMCITABINE
     Indication: Undifferentiated sarcoma
     Dosage: 2 CYCLICAL
  6. DOCETAXEL [Suspect]
     Active Substance: DOCETAXEL
     Indication: Undifferentiated sarcoma
     Dosage: 2 CYCLICAL
  7. CATEQUENTINIB DIHYDROCHLORIDE [Suspect]
     Active Substance: CATEQUENTINIB DIHYDROCHLORIDE
     Indication: Antiangiogenic therapy
  8. BEVACIZUMAB [Suspect]
     Active Substance: BEVACIZUMAB
     Indication: Undifferentiated sarcoma

REACTIONS (2)
  - Adverse reaction [Unknown]
  - Product use in unapproved indication [Unknown]
